FAERS Safety Report 7191902-4 (Version None)
Quarter: 2010Q4

REPORT INFORMATION
  Report Type: 
  Country: None (occurrence: None)
  Receive Date: 20101223
  Receipt Date: 20101213
  Transmission Date: 20110411
  Serious: Yes (Hospitalization, Other)
  Sender: FDA-Public Use
  Company Number: PHHY2010MX38198

PATIENT
  Sex: Male

DRUGS (3)
  1. TRILEPTAL [Suspect]
     Indication: EPILEPSY
     Dosage: 3 TABLETS (600 MG) PER DAY
     Route: 048
     Dates: start: 20090114
  2. ATEMPERATOR /ARG/ [Concomitant]
     Dosage: UNK
     Dates: start: 20090101
  3. DIAZEPAM [Concomitant]
     Dosage: UNK
     Dates: start: 20100610

REACTIONS (7)
  - CONVULSION [None]
  - DEPRESSED LEVEL OF CONSCIOUSNESS [None]
  - DYSKINESIA [None]
  - HEAD INJURY [None]
  - PETIT MAL EPILEPSY [None]
  - TIC [None]
  - TREATMENT NONCOMPLIANCE [None]
